FAERS Safety Report 9967324 (Version 1)
Quarter: 2014Q1

REPORT INFORMATION
  Report Type: Report from Study
  Country: US (occurrence: US)
  Receive Date: 20140305
  Receipt Date: 20140305
  Transmission Date: 20141002
  Serious: No
  Sender: FDA-Public Use
  Company Number: US-ABBVIE-13P-163-1137535-00

PATIENT
  Age: 60 Year
  Sex: Female

DRUGS (7)
  1. HUMIRA [Suspect]
     Indication: CROHN^S DISEASE
     Dosage: ON WEDNESDAY
     Route: 058
     Dates: start: 20130515
  2. IMURAN [Concomitant]
     Indication: CROHN^S DISEASE
     Route: 048
  3. ASACOL [Concomitant]
     Indication: CROHN^S DISEASE
     Route: 048
  4. LIVEREX SUPPLEMENT [Concomitant]
     Indication: ABDOMINAL RIGIDITY
     Route: 048
  5. TRAZODONE [Concomitant]
     Indication: INSOMNIA
     Dosage: AT NIGHT
     Route: 048
  6. PHENERGAN [Concomitant]
     Indication: NAUSEA
     Route: 048
  7. LORTAB [Concomitant]
     Indication: PAIN
     Route: 048

REACTIONS (9)
  - Fistula discharge [Unknown]
  - Injection site pain [Not Recovered/Not Resolved]
  - Injection site bruising [Not Recovered/Not Resolved]
  - Injection site pain [Not Recovered/Not Resolved]
  - Drug effect incomplete [Not Recovered/Not Resolved]
  - Fistula [Unknown]
  - Blood iron decreased [Not Recovered/Not Resolved]
  - Fistula [Not Recovered/Not Resolved]
  - Mineral supplementation [Unknown]
